FAERS Safety Report 16519563 (Version 1)
Quarter: 2019Q3

REPORT INFORMATION
  Report Type: Spontaneous
  Country: FR (occurrence: FR)
  Receive Date: 20190702
  Receipt Date: 20190702
  Transmission Date: 20191004
  Serious: Yes (Other)
  Sender: FDA-Public Use
  Company Number: PHHY2019FR145628

PATIENT
  Age: 21 Year
  Sex: Female

DRUGS (2)
  1. LEVETIRACETAM. [Suspect]
     Active Substance: LEVETIRACETAM
     Indication: EPILEPSY
     Dosage: 750 MG, QD (IN FIRST TRIMESTER)
     Route: 065
  2. LEVETIRACETAM. [Suspect]
     Active Substance: LEVETIRACETAM
     Dosage: 1000 MG, QD (IN THIRD TRIMESTER)
     Route: 065

REACTIONS (5)
  - Premature rupture of membranes [Unknown]
  - Threatened labour [Unknown]
  - Maternal exposure during breast feeding [Unknown]
  - Myoclonus [Unknown]
  - Maternal exposure during pregnancy [Unknown]
